FAERS Safety Report 4290376-0 (Version None)
Quarter: 2004Q1

REPORT INFORMATION
  Report Type: 
  Country: None (occurrence: None)
  Receive Date: 20040209
  Receipt Date: 20030124
  Transmission Date: 20041129
  Serious: No
  Sender: FDA-Public Use
  Company Number: PW/030124/681

PATIENT
  Age: 54 Year
  Sex: Female

DRUGS (2)
  1. BUPRENORPHINE HYDROCHLORIDE [Suspect]
     Dosage: 8 MG SL
     Route: 060
  2. NALOXONE [Suspect]

REACTIONS (3)
  - CAROTID ARTERY OCCLUSION [None]
  - SHOCK [None]
  - TRANSIENT ISCHAEMIC ATTACK [None]
